FAERS Safety Report 9378974 (Version 1)
Quarter: 2013Q2

REPORT INFORMATION
  Report Type: Spontaneous
  Country: US (occurrence: None)
  Receive Date: 20130626
  Receipt Date: 20130626
  Transmission Date: 20140414
  Serious: Yes (Other)
  Sender: FDA-Public Use
  Company Number: 00159273A

PATIENT
  Age: 24 Year
  Sex: Female

DRUGS (3)
  1. PROACTIV RENEWING CLEANSER [Suspect]
     Indication: ACNE
     Dosage: ONCE DAILY DERMAL
     Dates: start: 20130516, end: 20130518
  2. PROACTIV SOLUTION REPAIRING TREATMENT [Suspect]
     Indication: ACNE
     Dosage: ONCE DAILY DERMAL
     Dates: start: 20130516, end: 20130518
  3. ZYRTEC [Concomitant]

REACTIONS (1)
  - Swelling face [None]
